FAERS Safety Report 9242457 (Version 1)
Quarter: 2013Q2

REPORT INFORMATION
  Report Type: Spontaneous
  Country: US (occurrence: US)
  Receive Date: 20130419
  Receipt Date: 20130419
  Transmission Date: 20140414
  Serious: No
  Sender: FDA-Public Use
  Company Number: US-PFIZER INC-2013119280

PATIENT
  Age: 9 Year
  Sex: Male

DRUGS (1)
  1. VIAGRA [Suspect]
     Dosage: 19 CAPSULES

REACTIONS (3)
  - Accidental exposure to product by child [Unknown]
  - Erectile dysfunction [Unknown]
  - Testicular disorder [Unknown]
